FAERS Safety Report 6922170-3 (Version None)
Quarter: 2010Q3

REPORT INFORMATION
  Report Type: 
  Country: None (occurrence: None)
  Receive Date: 20100812
  Receipt Date: 20100730
  Transmission Date: 20110219
  Serious: Yes (Hospitalization, Other)
  Sender: FDA-Public Use
  Company Number: DE-MERCK-1007DEU00133

PATIENT
  Age: 57 Year
  Sex: Male

DRUGS (29)
  1. ZOCOR [Suspect]
     Indication: HYPERLIPIDAEMIA
     Route: 048
  2. ZOCOR [Suspect]
     Route: 048
  3. ASPIRIN [Concomitant]
     Route: 065
  4. ALLOPURINOL [Concomitant]
     Route: 065
  5. TORSEMIDE [Concomitant]
     Route: 065
  6. CAPTOPRIL [Concomitant]
     Route: 065
  7. HYDROCHLOROTHIAZIDE AND RAMIPRIL [Concomitant]
     Route: 065
  8. PANTOPRAZOLE SODIUM [Concomitant]
     Route: 065
  9. CABERGOLINE [Suspect]
     Indication: RESTLESS LEGS SYNDROME
     Route: 048
     Dates: start: 20030101, end: 20060601
  10. CABERGOLINE [Suspect]
     Route: 048
     Dates: start: 20060601
  11. CABERGOLINE [Suspect]
     Route: 048
     Dates: end: 20090601
  12. CABERGOLINE [Suspect]
     Route: 048
     Dates: start: 20090601
  13. FERROUS GLYCINE SULFATE [Concomitant]
     Route: 048
  14. BENSERAZIDE HYDROCHLORIDE AND LEVODOPA [Concomitant]
     Route: 065
     Dates: start: 20030731, end: 20030822
  15. CARBIDOPA AND LEVODOPA [Concomitant]
     Route: 048
     Dates: start: 20030731, end: 20030822
  16. CARBIDOPA AND LEVODOPA [Concomitant]
     Route: 048
     Dates: start: 19930101, end: 20000101
  17. PRAMIPEXOLE [Suspect]
     Route: 065
     Dates: end: 20030101
  18. LORMETAZEPAM [Concomitant]
     Route: 065
  19. PREGABALIN [Concomitant]
     Route: 065
  20. ZOPICLONE [Concomitant]
     Route: 065
  21. VENLAFAXINE HYDROCHLORIDE [Concomitant]
     Route: 065
  22. QUETIAPINE FUMARATE [Concomitant]
     Route: 065
  23. IBUPROFEN [Concomitant]
     Route: 065
  24. MORPHINE [Concomitant]
     Route: 065
     Dates: start: 20070101
  25. OXYCODONE HYDROCHLORIDE [Concomitant]
     Route: 065
     Dates: start: 20090401, end: 20090501
  26. TRAMADOL HYDROCHLORIDE [Concomitant]
     Route: 065
     Dates: start: 20090401, end: 20090501
  27. LORMETAZEPAM [Concomitant]
     Route: 065
     Dates: end: 20030801
  28. LORMETAZEPAM [Concomitant]
     Route: 065
     Dates: start: 20030801
  29. DULOXETINE HYDROCHLORIDE [Concomitant]
     Route: 065
     Dates: start: 20090101

REACTIONS (49)
  - ALCOHOL DETOXIFICATION [None]
  - ALCOHOLISM [None]
  - AORTIC VALVE INCOMPETENCE [None]
  - ARTHROPATHY [None]
  - ATRIOVENTRICULAR BLOCK FIRST DEGREE [None]
  - BACK PAIN [None]
  - BILIRUBINURIA [None]
  - BLOOD CREATINE PHOSPHOKINASE INCREASED [None]
  - BONE DISORDER [None]
  - BUNDLE BRANCH BLOCK LEFT [None]
  - CARDIOMEGALY [None]
  - CEREBROVASCULAR ACCIDENT [None]
  - DEPRESSION [None]
  - DRUG ABUSE [None]
  - DYSPNOEA [None]
  - EPICONDYLITIS [None]
  - GOUTY ARTHRITIS [None]
  - GYNAECOMASTIA [None]
  - HAEMORRHOIDS [None]
  - HEPATIC CIRRHOSIS [None]
  - HEPATIC STEATOSIS [None]
  - HEPATOSPLENOMEGALY [None]
  - HYPERPHAGIA [None]
  - HYPERTENSION [None]
  - HYPERURICAEMIA [None]
  - INSOMNIA [None]
  - INTERVERTEBRAL DISC PROTRUSION [None]
  - LEFT VENTRICULAR HYPERTROPHY [None]
  - LOGORRHOEA [None]
  - MYOCARDITIS [None]
  - MYOSITIS [None]
  - OBESITY [None]
  - OEDEMA PERIPHERAL [None]
  - PAIN IN EXTREMITY [None]
  - PATHOLOGICAL GAMBLING [None]
  - PERIARTHRITIS [None]
  - PERSONALITY DISORDER [None]
  - PULMONARY HYPERTENSION [None]
  - RENAL CYST [None]
  - RESTLESS LEGS SYNDROME [None]
  - ROAD TRAFFIC ACCIDENT [None]
  - SELF INJURIOUS BEHAVIOUR [None]
  - SERUM FERRITIN DECREASED [None]
  - SLEEP APNOEA SYNDROME [None]
  - SOMNOLENCE [None]
  - SUICIDAL IDEATION [None]
  - SUICIDE ATTEMPT [None]
  - TIBIA FRACTURE [None]
  - UMBILICAL HERNIA [None]
